FAERS Safety Report 9168350 (Version 1)
Quarter: 2013Q1

REPORT INFORMATION
  Report Type: Spontaneous
  Country: ES (occurrence: None)
  Receive Date: 20130305
  Receipt Date: 20130305
  Transmission Date: 20140127
  Serious: Yes (Hospitalization, Other)
  Sender: FDA-Public Use
  Company Number: AUR-APL-2013-01887

PATIENT
  Age: 47 Year
  Sex: 0

DRUGS (1)
  1. OLANZAPINE (OLANZAPINE) [Suspect]
     Indication: SCHIZOPHRENIA, PARANOID TYPE

REACTIONS (3)
  - Hepatitis cholestatic [None]
  - Hepatocellular injury [None]
  - Hepatotoxicity [None]
